FAERS Safety Report 25062106 (Version 1)
Quarter: 2025Q1

REPORT INFORMATION
  Report Type: Spontaneous
  Country: US (occurrence: US)
  Receive Date: 20250311
  Receipt Date: 20250311
  Transmission Date: 20250409
  Serious: Yes (Death, Hospitalization, Other)
  Sender: GRAVITI PHARMACEUTICALS PRIVATE LIMITED
  Company Number: US-GRAVITIPHARMA-GRA-2502-US-LIT-0115

PATIENT
  Age: 38 Year
  Sex: Female

DRUGS (1)
  1. BUPROPION [Suspect]
     Active Substance: BUPROPION
     Indication: Product used for unknown indication
     Route: 065

REACTIONS (15)
  - Brain death [Fatal]
  - Hypotension [Unknown]
  - Bradycardia [Unknown]
  - Bradypnoea [Unknown]
  - Arrhythmia [Unknown]
  - Electrocardiogram QT prolonged [Unknown]
  - Myocardial injury [Unknown]
  - Myocardial ischaemia [Unknown]
  - Respiratory depression [Unknown]
  - Coma [Unknown]
  - Depressed level of consciousness [Unknown]
  - Seizure [Unknown]
  - Metabolic acidosis [Unknown]
  - Cardiac arrest [Unknown]
  - Toxicity to various agents [Unknown]
